FAERS Safety Report 15985825 (Version 2)
Quarter: 2019Q1

REPORT INFORMATION
  Report Type: Spontaneous
  Country: PT (occurrence: PT)
  Receive Date: 20190220
  Receipt Date: 20190307
  Transmission Date: 20190418
  Serious: Yes (Death)
  Sender: FDA-Public Use
  Company Number: PT-LINDE-PT-LHC-2019037

PATIENT
  Age: 85 Year
  Sex: Male

DRUGS (1)
  1. OXIG?NIO MEDICINAL LINDE [Suspect]
     Active Substance: OXYGEN
     Indication: PRODUCT USED FOR UNKNOWN INDICATION
     Route: 055
     Dates: start: 20190102

REACTIONS (2)
  - Intentional product misuse [Fatal]
  - Oxygen saturation decreased [Fatal]

NARRATIVE: CASE EVENT DATE: 20190206
